FAERS Safety Report 8423146-X (Version None)
Quarter: 2012Q2

REPORT INFORMATION
  Report Type: 
  Country: None (occurrence: None)
  Receive Date: 20120608
  Receipt Date: 20120604
  Transmission Date: 20120825
  Serious: Yes (Death)
  Sender: FDA-Public Use
  Company Number: HR-JNJFOC-20120603715

PATIENT

DRUGS (20)
  1. ETOPOSIDE [Suspect]
     Indication: BURKITT'S LYMPHOMA
     Dosage: DAYS 4, 5
     Route: 065
  2. NEUPOGEN [Concomitant]
     Indication: SUPPORTIVE CARE
     Route: 065
  3. METHOTREXATE [Suspect]
     Indication: BURKITT'S LYMPHOMA
     Dosage: ON DAY 1 WITH FOLINIC ACID RESCUE
     Route: 065
  4. RADIATION THERAPY NOS [Suspect]
     Indication: BURKITT'S LYMPHOMA
     Dosage: 30-36 GY
     Route: 065
  5. PREDNISONE [Suspect]
     Indication: BURKITT'S LYMPHOMA
     Dosage: DAYS 1-5
     Route: 065
  6. IFOSFAMIDE [Suspect]
     Indication: BURKITT'S LYMPHOMA
     Dosage: ON DAYS 1-5
     Route: 065
  7. LEUCOVORIN CALCIUM [Suspect]
     Indication: BURKITT'S LYMPHOMA
     Route: 065
  8. BLOOD PRODUCTS [Concomitant]
     Indication: SUPPORTIVE CARE
     Route: 065
  9. ACYCLOVIR [Concomitant]
     Indication: SUPPORTIVE CARE
     Route: 065
  10. CYTARABINE [Suspect]
     Indication: BURKITT'S LYMPHOMA
     Dosage: ON DAYS 4, 5
     Route: 065
  11. METHOTREXATE [Suspect]
     Indication: PROPHYLAXIS
     Route: 037
  12. MESNA [Suspect]
     Indication: BURKITT'S LYMPHOMA
     Dosage: ON DAYS 1-5
     Route: 065
  13. RITUXIMAB [Suspect]
     Indication: BURKITT'S LYMPHOMA
     Route: 065
  14. ANTIBIOTICS [Concomitant]
     Indication: SUPPORTIVE CARE
     Route: 065
  15. DOXORUBICIN HCL [Suspect]
     Indication: BURKITT'S LYMPHOMA
     Dosage: ON DAYS 4, 5
     Route: 042
  16. CYCLOPHOSPHAMIDE [Suspect]
     Indication: BURKITT'S LYMPHOMA
     Dosage: ON DAYS 1-5
     Route: 065
  17. VINCRISTINE [Suspect]
     Indication: BURKITT'S LYMPHOMA
     Dosage: ON DAY 1
     Route: 065
  18. CYTARABINE [Suspect]
     Indication: PROPHYLAXIS
     Route: 037
  19. DEXAMETHASONE [Suspect]
     Indication: BURKITT'S LYMPHOMA
     Dosage: ON DAYS 1-5
     Route: 065
  20. METHYLPREDNISOLONE [Suspect]
     Indication: PROPHYLAXIS
     Route: 037

REACTIONS (2)
  - TUMOUR LYSIS SYNDROME [None]
  - MULTI-ORGAN FAILURE [None]
